FAERS Safety Report 8593607 (Version 2)
Quarter: 2013Q3

REPORT INFORMATION
  Report Type: Spontaneous
  Country: US (occurrence: US)
  Receive Date: 20120604
  Receipt Date: 20130717
  Transmission Date: 20140515
  Serious: Yes (Hospitalization, Disabling)
  Sender: FDA-Public Use
  Company Number: US-ASTRAZENECA-2012SE34687

PATIENT
  Age: 52 Year
  Sex: Female

DRUGS (2)
  1. NEXIUM [Suspect]
     Indication: GASTRIC DISORDER
     Dosage: 2 X
     Route: 048
     Dates: start: 2006
  2. PEPTO-BISMOL [Concomitant]

REACTIONS (7)
  - Chronic obstructive pulmonary disease [Unknown]
  - Respiratory disorder [Unknown]
  - Gastric disorder [Unknown]
  - Osteoporosis [Unknown]
  - Multiple fractures [Unknown]
  - Arthritis [Unknown]
  - Lung disorder [Unknown]
